FAERS Safety Report 10040310 (Version 3)
Quarter: 2014Q2

REPORT INFORMATION
  Report Type: Report from Study
  Country: JP (occurrence: JP)
  Receive Date: 20140327
  Receipt Date: 20140527
  Transmission Date: 20141212
  Serious: Yes (Disabling, Other)
  Sender: FDA-Public Use
  Company Number: JP-B.I. PHARMACEUTICALS,INC./RIDGEFIELD-2014-BI-12317NB

PATIENT
  Age: 87 Year
  Sex: Female
  Weight: 46 kg

DRUGS (9)
  1. PRAZAXA [Suspect]
     Indication: CEREBROVASCULAR ACCIDENT PROPHYLAXIS
     Dosage: 220 MG
     Route: 048
     Dates: start: 20131112, end: 20131122
  2. PRAZAXA [Suspect]
     Dosage: 220 MG
     Route: 048
     Dates: start: 20131218, end: 20140131
  3. CARVEDILOL [Concomitant]
     Dosage: 10 MG
     Route: 048
     Dates: end: 20131113
  4. AIMIX [Concomitant]
     Dosage: 1 ANZ
     Route: 048
     Dates: end: 20131113
  5. EXELON [Concomitant]
     Dosage: 18 MG
     Route: 062
     Dates: end: 20131126
  6. WARFARIN [Concomitant]
     Indication: ATRIAL FIBRILLATION
     Dosage: 1 MG
     Route: 048
     Dates: start: 20131203, end: 20131217
  7. SERENACE [Concomitant]
     Dosage: 0.75 MG
     Route: 048
     Dates: start: 20131115, end: 20131119
  8. RISPERIDONE [Concomitant]
     Route: 048
     Dates: start: 20131122, end: 20131123
  9. BUFFERIN 81MG [Concomitant]
     Dosage: 81 MG
     Route: 048

REACTIONS (7)
  - Sedation [Recovered/Resolved with Sequelae]
  - Cerebral infarction [Unknown]
  - Schizophrenia [Recovered/Resolved]
  - Restlessness [Recovered/Resolved]
  - Haemoglobin decreased [Not Recovered/Not Resolved]
  - Drug ineffective [Unknown]
  - Dysphagia [Recovered/Resolved]
